FAERS Safety Report 11519892 (Version 1)
Quarter: 2015Q3

REPORT INFORMATION
  Report Type: Spontaneous
  Country: GB (occurrence: GB)
  Receive Date: 20150918
  Receipt Date: 20150918
  Transmission Date: 20151125
  Serious: Yes (Hospitalization)
  Sender: FDA-Public Use
  Company Number: GB-ACCORD-033622

PATIENT
  Age: 87 Year
  Sex: Male
  Weight: 67 kg

DRUGS (6)
  1. GOSERELIN/GOSERELIN ACETATE [Concomitant]
     Indication: PROSTATE CANCER
     Dosage: ONGOING
     Route: 058
     Dates: start: 20150703
  2. CYPROTERONE [Interacting]
     Active Substance: CYPROTERONE
     Indication: PROSTATE CANCER
     Route: 048
     Dates: start: 20150727, end: 20150731
  3. BISOPROLOL [Concomitant]
     Active Substance: BISOPROLOL
     Indication: CARDIAC FAILURE CONGESTIVE
     Dosage: ONGOING
     Route: 048
     Dates: start: 201004
  4. WARFARIN [Concomitant]
     Active Substance: WARFARIN
     Indication: ATRIAL FIBRILLATION
     Dosage: AS PER INTERNATIONAL NORMALISED RATIO
     Route: 048
     Dates: start: 201005
  5. LISINOPRIL. [Concomitant]
     Active Substance: LISINOPRIL
     Indication: HYPERTENSION
     Route: 048
     Dates: start: 20111008
  6. SIMVASTATIN. [Suspect]
     Active Substance: SIMVASTATIN
     Indication: HYPERCHOLESTEROLAEMIA
     Route: 048
     Dates: start: 201004

REACTIONS (2)
  - Inhibitory drug interaction [Unknown]
  - Rhabdomyolysis [Not Recovered/Not Resolved]

NARRATIVE: CASE EVENT DATE: 20150729
